FAERS Safety Report 10500762 (Version 1)
Quarter: 2014Q4

REPORT INFORMATION
  Report Type: Spontaneous
  Country: US (occurrence: US)
  Receive Date: 20141007
  Receipt Date: 20141007
  Transmission Date: 20150528
  Serious: Yes (Other)
  Sender: FDA-Public Use
  Company Number: US-009507513-1410USA002051

PATIENT
  Sex: Female

DRUGS (2)
  1. SINEMET [Suspect]
     Active Substance: CARBIDOPA\LEVODOPA
     Dosage: UNK
     Route: 048
  2. SINEMET [Suspect]
     Active Substance: CARBIDOPA\LEVODOPA
     Indication: RESTLESS LEGS SYNDROME
     Dosage: STRENGTH: 10/100, UNIT NOT SPECIFIED
     Route: 048

REACTIONS (3)
  - Breast cancer [Unknown]
  - Metastases to bone [Unknown]
  - No therapeutic response [Unknown]

NARRATIVE: CASE EVENT DATE: 1993
